FAERS Safety Report 19216276 (Version 2)
Quarter: 2021Q2

REPORT INFORMATION
  Report Type: Report from Study
  Country: GB (occurrence: GB)
  Receive Date: 20210505
  Receipt Date: 20210506
  Transmission Date: 20210717
  Serious: Yes (Other)
  Sender: FDA-Public Use
  Company Number: GB-PFIZER INC-2021474274

PATIENT

DRUGS (1)
  1. NOREPINEPHRINE BITARTRATE. [Suspect]
     Active Substance: NOREPINEPHRINE BITARTRATE
     Indication: HEPATORENAL SYNDROME
     Dosage: BEGAN AT A DOSE OF 5 MCG/MIN

REACTIONS (2)
  - Ventricular tachycardia [Unknown]
  - Myocardial ischaemia [Unknown]
